FAERS Safety Report 6020193-2 (Version None)
Quarter: 2008Q4

REPORT INFORMATION
  Report Type: 
  Country: None (occurrence: None)
  Receive Date: 20081223
  Receipt Date: 20081223
  Transmission Date: 20090506
  Serious: Yes (Other)
  Sender: FDA-Public Use
  Company Number: None

PATIENT
  Age: 58 Year
  Sex: Female

DRUGS (1)
  1. PREFEST [Suspect]
     Indication: HORMONE REPLACEMENT THERAPY
     Dosage: 1 TABLET BY MOUTH ONCE DAILY
     Route: 048
     Dates: start: 20081010, end: 20081017

REACTIONS (1)
  - CHEST PAIN [None]
